FAERS Safety Report 9352763 (Version 1)
Quarter: 2013Q2

REPORT INFORMATION
  Report Type: Spontaneous
  Country: RO (occurrence: RO)
  Receive Date: 20130618
  Receipt Date: 20130618
  Transmission Date: 20140414
  Serious: Yes (Death)
  Sender: FDA-Public Use
  Company Number: RO-ROCHE-1236625

PATIENT
  Sex: 0

DRUGS (1)
  1. FUZEON [Suspect]
     Indication: HIV INFECTION
     Route: 065

REACTIONS (4)
  - CD4 lymphocytes decreased [Unknown]
  - Nodule [Unknown]
  - Polyneuropathy [Unknown]
  - CD4 lymphocytes decreased [Fatal]
